FAERS Safety Report 9565311 (Version 3)
Quarter: 2013Q4

REPORT INFORMATION
  Report Type: Spontaneous
  Country: IT (occurrence: IT)
  Receive Date: 20130930
  Receipt Date: 20131014
  Transmission Date: 20140711
  Serious: Yes (Other)
  Sender: FDA-Public Use
  Company Number: IT-JNJFOC-20130909384

PATIENT
  Age: 37 Year
  Sex: Male
  Weight: 70 kg

DRUGS (6)
  1. HALDOL [Suspect]
     Indication: PRODUCT USED FOR UNKNOWN INDICATION
     Route: 048
     Dates: start: 20130916, end: 20130916
  2. TAVOR [Suspect]
     Indication: NEUROPSYCHIATRIC SYNDROME
     Route: 048
     Dates: start: 20130916, end: 20130916
  3. ANTABUSE [Suspect]
     Indication: ALCOHOLISM
     Route: 048
     Dates: start: 20130916, end: 20130916
  4. ALCOVER [Suspect]
     Indication: PRODUCT USED FOR UNKNOWN INDICATION
     Route: 048
     Dates: start: 20130916, end: 20130916
  5. KEPPRA [Suspect]
     Indication: NEUROPSYCHIATRIC SYNDROME
     Route: 048
     Dates: start: 20130916, end: 20130916
  6. HALDOL [Suspect]
     Indication: PRODUCT USED FOR UNKNOWN INDICATION
     Route: 048

REACTIONS (3)
  - Slow response to stimuli [Unknown]
  - Drug abuse [Unknown]
  - Self injurious behaviour [Unknown]
